FAERS Safety Report 11421027 (Version 6)
Quarter: 2015Q4

REPORT INFORMATION
  Report Type: Report from Study
  Country: ZA (occurrence: ZA)
  Receive Date: 20150826
  Receipt Date: 20151029
  Transmission Date: 20160304
  Serious: Yes (Life-Threatening, Hospitalization, Other)
  Sender: FDA-Public Use
  Company Number: PHHY2015ZA070958

PATIENT
  Age: 32 Year
  Sex: Female
  Weight: 48 kg

DRUGS (4)
  1. TRAZODONE [Concomitant]
     Active Substance: TRAZODONE HYDROCHLORIDE
     Indication: DEPRESSION
     Dosage: 100 MG, QD (AT NIGHT)
     Route: 048
  2. GILENYA [Suspect]
     Active Substance: FINGOLIMOD HYDROCHLORIDE
     Indication: RELAPSING-REMITTING MULTIPLE SCLEROSIS
     Dosage: 0.5 MG, QD
     Route: 048
     Dates: start: 20150609, end: 2015
  3. SERDEP//SERTRALINE HYDROCHLORIDE [Concomitant]
     Indication: DEPRESSION
     Dosage: 100 MG, QD (AT NIGHT)
     Route: 048
  4. EXSIRA [Concomitant]
     Active Substance: DESVENLAFAXINE SUCCINATE
     Indication: DEPRESSION
     Dosage: 50 MG, QD
     Route: 048
     Dates: start: 2015

REACTIONS (16)
  - Asthenia [Not Recovered/Not Resolved]
  - Bone pain [Unknown]
  - Drug ineffective [Not Recovered/Not Resolved]
  - Feeling abnormal [Not Recovered/Not Resolved]
  - Pyrexia [Unknown]
  - Red blood cell count increased [Not Recovered/Not Resolved]
  - Heart rate decreased [Unknown]
  - Rash [Recovered/Resolved]
  - Dizziness [Not Recovered/Not Resolved]
  - Arthralgia [Unknown]
  - Hypertension [Unknown]
  - Encephalitis [Recovered/Resolved]
  - Nausea [Unknown]
  - Back pain [Unknown]
  - Lymphadenopathy [Not Recovered/Not Resolved]
  - Polymerase chain reaction positive [Unknown]

NARRATIVE: CASE EVENT DATE: 20150610
